FAERS Safety Report 17089091 (Version 1)
Quarter: 2019Q4

REPORT INFORMATION
  Report Type: Spontaneous
  Country: FR (occurrence: FR)
  Receive Date: 20191128
  Receipt Date: 20191128
  Transmission Date: 20200122
  Serious: Yes (Other)
  Sender: FDA-Public Use
  Company Number: FR-ASTRAZENECA-2019SF68807

PATIENT
  Age: 21883 Day
  Sex: Male
  Weight: 106 kg

DRUGS (6)
  1. KARDEGIC [Concomitant]
     Active Substance: ASPIRIN DL-LYSINE
     Indication: ACUTE CORONARY SYNDROME
     Dates: start: 20190907
  2. BISOPROLOL [Concomitant]
     Active Substance: BISOPROLOL
     Indication: ACUTE CORONARY SYNDROME
     Dates: start: 20190907
  3. LANSOPRAZOLE. [Concomitant]
     Active Substance: LANSOPRAZOLE
     Indication: ACUTE CORONARY SYNDROME
     Dates: start: 20190907
  4. RAMIPRIL. [Concomitant]
     Active Substance: RAMIPRIL
     Indication: ACUTE CORONARY SYNDROME
     Dates: start: 20190907
  5. CRESTOR [Concomitant]
     Active Substance: ROSUVASTATIN CALCIUM
     Indication: ACUTE CORONARY SYNDROME
     Dates: start: 20190907
  6. BRILIQUE [Suspect]
     Active Substance: TICAGRELOR
     Indication: ACUTE CORONARY SYNDROME
     Route: 048
     Dates: start: 20190907

REACTIONS (1)
  - Sleep apnoea syndrome [Unknown]

NARRATIVE: CASE EVENT DATE: 20191024
